FAERS Safety Report 16461969 (Version 6)
Quarter: 2020Q1

REPORT INFORMATION
  Report Type: Report from Study
  Country: JP (occurrence: JP)
  Receive Date: 20190621
  Receipt Date: 20200318
  Transmission Date: 20200409
  Serious: No
  Sender: FDA-Public Use
  Company Number: JP-GLAXOSMITHKLINE-JP2019JPN109501

PATIENT
  Age: 44 Year
  Sex: Female
  Weight: 99 kg

DRUGS (39)
  1. MEPOLIZUMAB [Suspect]
     Active Substance: MEPOLIZUMAB
     Dosage: 300 MG, QD
     Route: 058
     Dates: start: 20191213, end: 20191213
  2. MEPOLIZUMAB [Suspect]
     Active Substance: MEPOLIZUMAB
     Dosage: 300 MG, QD
     Route: 058
     Dates: start: 20200110, end: 20200110
  3. SYMBICORT TURBUHALER (BUDESONIDE + FORMOTEROL FUMARATE DIHYDRATE) [Concomitant]
     Indication: EOSINOPHILIC GRANULOMATOSIS WITH POLYANGIITIS
     Dosage: 160 ?G, 1D
  4. MEPOLIZUMAB [Suspect]
     Active Substance: MEPOLIZUMAB
     Dosage: 300 MG, QD
     Route: 058
     Dates: start: 20190510, end: 20190510
  5. MEPOLIZUMAB [Suspect]
     Active Substance: MEPOLIZUMAB
     Dosage: 300 MG, QD
     Route: 058
     Dates: start: 20190705, end: 20190705
  6. MEPOLIZUMAB [Suspect]
     Active Substance: MEPOLIZUMAB
     Dosage: 300 MG, QD
     Route: 058
     Dates: start: 20191018, end: 20191018
  7. MEPOLIZUMAB [Suspect]
     Active Substance: MEPOLIZUMAB
     Dosage: 300 MG, QD
     Route: 058
     Dates: start: 20200207, end: 20200207
  8. PREDONINE [Concomitant]
     Active Substance: PREDNISOLONE
     Dosage: 6 MG, 1D
     Dates: start: 20190907, end: 20191115
  9. PREDONINE [Concomitant]
     Active Substance: PREDNISOLONE
     Dosage: 5 MG, 1D
     Dates: start: 20191116, end: 20200207
  10. TAKECAB TABLETS [Concomitant]
     Dosage: 10 MG, 1D
     Dates: end: 201910
  11. RHEUMATREX [Concomitant]
     Active Substance: METHOTREXATE SODIUM
     Indication: EOSINOPHILIC GRANULOMATOSIS WITH POLYANGIITIS
     Dosage: 8 MG, WE
     Dates: start: 20191019, end: 20191115
  12. PREDONINE [Concomitant]
     Active Substance: PREDNISOLONE
     Dosage: 15 MG, 1D
     Dates: start: 20190420, end: 20190510
  13. TALION TABLETS [Concomitant]
     Indication: EOSINOPHILIC GRANULOMATOSIS WITH POLYANGIITIS
     Dosage: 10 MG, BID
  14. LECTISOL [Concomitant]
     Active Substance: DAPSONE
     Dosage: 50 MG, 1D
  15. MEPOLIZUMAB [Suspect]
     Active Substance: MEPOLIZUMAB
     Dosage: 300 MG, QD
     Route: 058
     Dates: start: 20190412, end: 20190412
  16. PREDONINE [Concomitant]
     Active Substance: PREDNISOLONE
     Dosage: 20 MG, 1D
     Dates: start: 20190317, end: 20190405
  17. PREDONINE [Concomitant]
     Active Substance: PREDNISOLONE
     Dosage: 9 MG, 1D
     Dates: start: 20190608, end: 20190705
  18. PREDONINE [Concomitant]
     Active Substance: PREDNISOLONE
     Dosage: 7 MG, 1D
     Dates: start: 20190810, end: 20190906
  19. IMURAN [Concomitant]
     Active Substance: AZATHIOPRINE
     Indication: EOSINOPHILIC GRANULOMATOSIS WITH POLYANGIITIS
     Dosage: 125 MG, 1D
     Dates: start: 20190119, end: 20190322
  20. IMURAN [Concomitant]
     Active Substance: AZATHIOPRINE
     Dosage: 100 MG, 1D
     Dates: start: 20190323, end: 20191018
  21. ALLELOCK TABLETS [Concomitant]
     Indication: EOSINOPHILIC GRANULOMATOSIS WITH POLYANGIITIS
     Dosage: 5 MG, BID
  22. PREDONINE [Concomitant]
     Active Substance: PREDNISOLONE
     Dosage: 25 MG, 1D
     Dates: start: 20190305, end: 20190316
  23. PREDONINE [Concomitant]
     Active Substance: PREDNISOLONE
     Dosage: 17.5 MG, 1D
     Dates: start: 20190406, end: 20190419
  24. PREDONINE [Concomitant]
     Active Substance: PREDNISOLONE
     Dosage: 8 MG, 1D
     Dates: start: 20190706, end: 20190809
  25. LIPITOR TABLETS [Concomitant]
     Dosage: 10 MG, 1D
  26. BONALON TABLET [Concomitant]
     Dosage: 35 MG, WE
     Dates: end: 20191214
  27. MEDICON (DEXTROMETHORPHAN HYDROBROMIDE HYDRATE) [Concomitant]
     Indication: EOSINOPHILIC GRANULOMATOSIS WITH POLYANGIITIS
     Dosage: 30 MG, PRN
  28. MEPOLIZUMAB [Suspect]
     Active Substance: MEPOLIZUMAB
     Dosage: 300 MG, QD
     Route: 058
     Dates: start: 20190808, end: 20190808
  29. PREDONINE [Concomitant]
     Active Substance: PREDNISOLONE
     Indication: EOSINOPHILIC GRANULOMATOSIS WITH POLYANGIITIS
     Dosage: 22.5 MG, 1D
     Dates: start: 20190202, end: 20190222
  30. PREDONINE [Concomitant]
     Active Substance: PREDNISOLONE
     Dosage: 12.5 MG, 1D
     Dates: start: 20190511, end: 20190524
  31. PREDONINE [Concomitant]
     Active Substance: PREDNISOLONE
     Dosage: 4 MG, 1D
     Dates: start: 20200208
  32. SINGULAIR [Concomitant]
     Active Substance: MONTELUKAST SODIUM
     Indication: EOSINOPHILIC GRANULOMATOSIS WITH POLYANGIITIS
     Dosage: 10 MG, 1D
  33. MEPOLIZUMAB [Suspect]
     Active Substance: MEPOLIZUMAB
     Dosage: 300 MG, QD
     Route: 058
     Dates: start: 20190607, end: 20190607
  34. MEPOLIZUMAB [Suspect]
     Active Substance: MEPOLIZUMAB
     Dosage: 300 MG, QD
     Route: 058
     Dates: start: 20190912, end: 20190912
  35. RHEUMATREX [Concomitant]
     Active Substance: METHOTREXATE SODIUM
     Dosage: 12 MG, WE
     Dates: start: 20191116
  36. MEPOLIZUMAB [Suspect]
     Active Substance: MEPOLIZUMAB
     Indication: EOSINOPHILIC GRANULOMATOSIS WITH POLYANGIITIS
     Dosage: 300 MG, QD
     Route: 058
     Dates: start: 20190315, end: 20190315
  37. MEPOLIZUMAB [Suspect]
     Active Substance: MEPOLIZUMAB
     Dosage: 300 MG, QD
     Route: 058
     Dates: start: 20191115, end: 20191115
  38. PREDONINE [Concomitant]
     Active Substance: PREDNISOLONE
     Dosage: 20 MG, 1D
     Dates: start: 20190223, end: 20190304
  39. PREDONINE [Concomitant]
     Active Substance: PREDNISOLONE
     Dosage: 10 MG, 1D
     Dates: start: 20190525, end: 20190607

REACTIONS (5)
  - Musculoskeletal stiffness [Recovering/Resolving]
  - Enthesopathy [Recovering/Resolving]
  - Malaise [Recovering/Resolving]
  - Pain in extremity [Recovering/Resolving]
  - Musculoskeletal pain [Recovering/Resolving]

NARRATIVE: CASE EVENT DATE: 201905
